FAERS Safety Report 8415921-2 (Version None)
Quarter: 2012Q2

REPORT INFORMATION
  Report Type: 
  Country: None (occurrence: None)
  Receive Date: 20120606
  Receipt Date: 20120525
  Transmission Date: 20120825
  Serious: Yes (Other)
  Sender: FDA-Public Use
  Company Number: US-SANOFI-AVENTIS-2012SA038715

PATIENT
  Age: 70 Year
  Sex: Male

DRUGS (2)
  1. APIDRA [Suspect]
     Dosage: SLIDING SCALE
     Route: 058
     Dates: start: 20101201
  2. SOLOSTAR [Suspect]
     Dates: start: 20101201

REACTIONS (1)
  - GASTROINTESTINAL TRACT ADENOMA [None]
